FAERS Safety Report 9652469 (Version 2)
Quarter: 2013Q4

REPORT INFORMATION
  Report Type: Spontaneous
  Country: BE (occurrence: BE)
  Receive Date: 20131029
  Receipt Date: 20131121
  Transmission Date: 20140711
  Serious: Yes (Hospitalization)
  Sender: FDA-Public Use
  Company Number: BE-B.I. PHARMACEUTICALS,INC./RIDGEFIELD-2013-BI-33856BL

PATIENT
  Age: 80 Year
  Sex: Male
  Weight: 92 kg

DRUGS (9)
  1. PRADAXA [Suspect]
     Indication: ATRIAL FIBRILLATION
     Dosage: 220 MG
     Route: 048
     Dates: start: 20120215, end: 20131014
  2. CARVEDILOL [Concomitant]
     Indication: ATRIAL FIBRILLATION
     Dosage: 12.5 NR
     Route: 048
     Dates: start: 20111221
  3. DUOVENT [Concomitant]
     Indication: ASTHMA
     Route: 055
  4. FLIXONASE [Concomitant]
     Indication: ASTHMA
     Route: 045
  5. ZANIDIP [Concomitant]
     Indication: HYPERTENSION
     Dosage: 10
     Route: 048
     Dates: start: 20110121
  6. OMEPRAZOLE [Concomitant]
     Indication: GASTROOESOPHAGEAL REFLUX DISEASE
     Dosage: 20
     Route: 048
     Dates: start: 20120503
  7. OXAZEPAM [Concomitant]
     Indication: SLEEP DISORDER
     Dosage: 15
     Route: 048
  8. SERETIDE [Concomitant]
     Indication: CHRONIC OBSTRUCTIVE PULMONARY DISEASE
     Dosage: 250/50
     Route: 055
     Dates: start: 20081216
  9. SERETIDE [Concomitant]
     Indication: ASTHMA

REACTIONS (3)
  - Dysarthria [Recovered/Resolved with Sequelae]
  - Speech disorder [Recovered/Resolved with Sequelae]
  - Ischaemia [Recovered/Resolved with Sequelae]
